FAERS Safety Report 5958270-4 (Version None)
Quarter: 2008Q4

REPORT INFORMATION
  Report Type: 
  Country: None (occurrence: None)
  Receive Date: 20081119
  Receipt Date: 20081112
  Transmission Date: 20090506
  Serious: Yes (Hospitalization)
  Sender: FDA-Public Use
  Company Number: US-ELI_LILLY_AND_COMPANY-US200811002657

PATIENT
  Sex: Male

DRUGS (3)
  1. HUMULIN R [Suspect]
  2. HUMULIN N [Suspect]
  3. LASIX [Concomitant]

REACTIONS (1)
  - ARTHROPATHY [None]
